FAERS Safety Report 6881434-2 (Version None)
Quarter: 2010Q3

REPORT INFORMATION
  Report Type: 
  Country: None (occurrence: None)
  Receive Date: 20100728
  Receipt Date: 20100728
  Transmission Date: 20110219
  Serious: Yes (Life-Threatening)
  Sender: FDA-Public Use
  Company Number: None

PATIENT
  Age: 36 Year
  Sex: Female
  Weight: 85.2762 kg

DRUGS (1)
  1. YAZ [Suspect]
     Indication: METRORRHAGIA
     Dosage: 1 QD PO
     Route: 048
     Dates: start: 20100613, end: 20100623

REACTIONS (9)
  - AGITATION [None]
  - ANXIETY [None]
  - CARDIAC FLUTTER [None]
  - DIZZINESS [None]
  - DYSPNOEA [None]
  - HYPOAESTHESIA [None]
  - PALPITATIONS [None]
  - SUPRAVENTRICULAR TACHYCARDIA [None]
  - THERAPEUTIC PRODUCT INEFFECTIVE [None]
